FAERS Safety Report 12340378 (Version 2)
Quarter: 2016Q2

REPORT INFORMATION
  Report Type: Spontaneous
  Country: IT (occurrence: IT)
  Receive Date: 20160506
  Receipt Date: 20160509
  Transmission Date: 20160815
  Serious: Yes (Life-Threatening)
  Sender: FDA-Public Use
  Company Number: IT-ROCHE-1753308

PATIENT
  Age: 73 Year
  Sex: Female
  Weight: 48 kg

DRUGS (5)
  1. BREVA [Concomitant]
     Active Substance: ALBUTEROL\IPRATROPIUM
     Dosage: ORAL AEROSOL SOLUTION 15 ML,INHALATION
     Route: 065
  2. VENTOLIN [Concomitant]
     Active Substance: ALBUTEROL SULFATE
     Dosage: 1 PRESSURISED CONTAINER 200 PUFFS
     Route: 065
  3. ROCEFIN [Suspect]
     Active Substance: CEFTRIAXONE SODIUM
     Indication: CHRONIC OBSTRUCTIVE PULMONARY DISEASE
     Dosage: 1 VIAL OF POWDER AND 1 VIAL OF SOLVENT, 3.5 ML
     Route: 030
     Dates: start: 20160429, end: 20160429
  4. CLENIL (ITALY) [Concomitant]
     Dosage: 20 X 2 ML SINGLE-DOSE CONTAINERS,INHALATION
     Route: 065
  5. BENTELAN [Concomitant]
     Active Substance: BETAMETHASONE SODIUM PHOSPHATE
     Dosage: 1 MG EFFERVESCENT TABLETS 10 TABLETS
     Route: 048

REACTIONS (1)
  - Circulatory collapse [Recovered/Resolved]

NARRATIVE: CASE EVENT DATE: 20160429
